FAERS Safety Report 9802107 (Version 1)
Quarter: 2014Q1

REPORT INFORMATION
  Report Type: Spontaneous
  Country: US (occurrence: US)
  Receive Date: 20140107
  Receipt Date: 20140107
  Transmission Date: 20141002
  Serious: No
  Sender: FDA-Public Use
  Company Number: US-009507513-1401USA002021

PATIENT
  Age: 28 Year
  Sex: Female

DRUGS (3)
  1. CLARITIN-D-24 [Suspect]
     Indication: RESPIRATORY TRACT CONGESTION
     Dosage: UNK, UNKNOWN
     Route: 048
     Dates: start: 20131127
  2. CLARITIN-D-24 [Suspect]
     Indication: DYSPNOEA
  3. CLARITIN-D-24 [Suspect]
     Indication: HEADACHE

REACTIONS (1)
  - Drug effect delayed [Unknown]
